FAERS Safety Report 7364496-8 (Version None)
Quarter: 2011Q1

REPORT INFORMATION
  Report Type: 
  Country: None (occurrence: None)
  Receive Date: 20110321
  Receipt Date: 20110310
  Transmission Date: 20110831
  Serious: Yes (Life-Threatening, Hospitalization, Disabling)
  Sender: FDA-Public Use
  Company Number: CH-JNJFOC-20110305190

PATIENT
  Sex: Male

DRUGS (4)
  1. IMMUNOSUPPRESSIVES [Concomitant]
  2. CORTICOSTEROIDS NOS [Concomitant]
  3. INFLIXIMAB, RECOMBINANT [Suspect]
     Route: 042
  4. INFLIXIMAB, RECOMBINANT [Suspect]
     Indication: COLITIS ULCERATIVE
     Route: 042

REACTIONS (3)
  - COLON CANCER [None]
  - HAEMORRHAGE [None]
  - COLITIS ULCERATIVE [None]
